FAERS Safety Report 9222757 (Version 3)
Quarter: 2013Q2

REPORT INFORMATION
  Report Type: Report from Study
  Country: CA (occurrence: CA)
  Receive Date: 20130410
  Receipt Date: 20130523
  Transmission Date: 20140414
  Serious: Yes (Hospitalization, Other)
  Sender: FDA-Public Use
  Company Number: CA-JNJFOC-20130404915

PATIENT
  Age: 38 Year
  Sex: Female
  Weight: 79 kg

DRUGS (1)
  1. REMICADE [Suspect]
     Indication: CROHN^S DISEASE
     Dosage: 8 INFUSIONS
     Route: 042
     Dates: start: 20120504

REACTIONS (2)
  - Lymphadenectomy [Unknown]
  - Shoulder operation [Recovered/Resolved]
